FAERS Safety Report 10057016 (Version 2)
Quarter: 2014Q2

REPORT INFORMATION
  Report Type: Spontaneous
  Country: AU (occurrence: CA)
  Receive Date: 20140403
  Receipt Date: 20140403
  Transmission Date: 20141212
  Serious: Yes (Hospitalization)
  Sender: FDA-Public Use
  Company Number: CA-PFIZER INC-2014091934

PATIENT
  Age: 61 Year
  Sex: Female

DRUGS (4)
  1. SERTRALINE HCL [Suspect]
     Indication: DEPRESSION
     Dosage: 100 MG, DAILY
  2. SERTRALINE HCL [Interacting]
     Indication: ANXIETY
     Dosage: 200 MG, DAILY
  3. PREMARIN [Interacting]
     Indication: MENOPAUSAL SYMPTOMS
     Dosage: 0.625 MG, DAILY
  4. PROGESTERONE [Interacting]
     Indication: MENOPAUSAL SYMPTOMS
     Dosage: 100 MG, DAILY

REACTIONS (3)
  - Drug interaction [Recovering/Resolving]
  - Drug-induced liver injury [Recovering/Resolving]
  - Drug effect incomplete [Unknown]
